FAERS Safety Report 7398631-2 (Version None)
Quarter: 2011Q2

REPORT INFORMATION
  Report Type: 
  Country: None (occurrence: None)
  Receive Date: 20110407
  Receipt Date: 20110330
  Transmission Date: 20111010
  Serious: No
  Sender: FDA-Public Use
  Company Number: US-BIOGENIDEC-2011BI012170

PATIENT
  Age: 48 Year
  Sex: Female

DRUGS (1)
  1. TYSABRI [Suspect]
     Indication: MULTIPLE SCLEROSIS
     Route: 042
     Dates: start: 20091211

REACTIONS (6)
  - STRESS [None]
  - NEURALGIA [None]
  - APHAGIA [None]
  - MUSCULAR WEAKNESS [None]
  - ARTHRALGIA [None]
  - INSOMNIA [None]
